FAERS Safety Report 17568802 (Version 1)
Quarter: 2020Q1

REPORT INFORMATION
  Report Type: Other
  Country: GB (occurrence: GB)
  Receive Date: 20200321
  Receipt Date: 20200321
  Transmission Date: 20200409
  Serious: Yes (Hospitalization, Other)
  Sender: FDA-Public Use
  Company Number: GB-EMCURE PHARMACEUTICALS LTD-2020-EPL-000326

PATIENT
  Age: 65 Year
  Sex: Male
  Weight: 82 kg

DRUGS (6)
  1. SULFAMETHOXAZOLE, TRIMETHOPRIM [Suspect]
     Active Substance: SULFAMETHOXAZOLE\TRIMETHOPRIM
     Indication: OSTEOMYELITIS CHRONIC
     Dosage: 2880 MILLIGRAM, DAILY
     Route: 048
     Dates: start: 20200109, end: 20200216
  2. ENOXAPARIN [Concomitant]
     Active Substance: ENOXAPARIN
  3. CODEINE [Concomitant]
     Active Substance: CODEINE
  4. DOCUSATE [Concomitant]
     Active Substance: DOCUSATE
  5. CASSIA [Concomitant]
  6. PARACETAMOL [Concomitant]
     Active Substance: ACETAMINOPHEN
     Dosage: UNK

REACTIONS (4)
  - Ocular icterus [Unknown]
  - Chromaturia [Unknown]
  - Liver function test increased [Recovering/Resolving]
  - Rash [Unknown]

NARRATIVE: CASE EVENT DATE: 20200216
